FAERS Safety Report 6374771-1 (Version None)
Quarter: 2009Q3

REPORT INFORMATION
  Report Type: 
  Country: None (occurrence: None)
  Receive Date: 20090924
  Receipt Date: 20090921
  Transmission Date: 20100115
  Serious: Yes (Death, Hospitalization)
  Sender: FDA-Public Use
  Company Number: PHHY2009CA15594

PATIENT
  Sex: Male

DRUGS (2)
  1. SANDOSTATIN LAR [Suspect]
     Indication: GASTROINTESTINAL ANGIODYSPLASIA
     Dosage: 20 MG, QMO
     Route: 030
     Dates: start: 20060306, end: 20090311
  2. ANTIBIOTICS [Concomitant]

REACTIONS (5)
  - BLOOD CREATININE INCREASED [None]
  - DEATH [None]
  - DIALYSIS [None]
  - PNEUMONIA [None]
  - PYREXIA [None]
